FAERS Safety Report 10666076 (Version 4)
Quarter: 2015Q2

REPORT INFORMATION
  Report Type: Spontaneous
  Country: FR (occurrence: FR)
  Receive Date: 20141219
  Receipt Date: 20150421
  Transmission Date: 20150821
  Serious: Yes (Hospitalization)
  Sender: FDA-Public Use
  Company Number: FR-PFIZER INC-2014321712

PATIENT
  Age: 68 Year
  Sex: Female

DRUGS (25)
  1. ASPEGIC [Suspect]
     Active Substance: ASPIRIN DL-LYSINE
     Indication: MYOCARDIAL ISCHAEMIA
     Dosage: 125 MG, DAILY
     Route: 042
     Dates: start: 20141014, end: 20141017
  2. VENTOLINE [Suspect]
     Active Substance: ALBUTEROL
     Indication: DYSPNOEA
     Dosage: 15 MG, DAILY
     Route: 055
     Dates: start: 20141020, end: 20141020
  3. LASILIX [Concomitant]
     Active Substance: FUROSEMIDE
     Dosage: UNK
     Dates: start: 201410
  4. INEXIUM [Concomitant]
     Active Substance: ESOMEPRAZOLE
     Dosage: UNK
     Dates: start: 201410
  5. ROCEPHINE [Suspect]
     Active Substance: CEFTRIAXONE SODIUM
     Dosage: 1 G, DAILY
     Route: 065
     Dates: start: 20141024
  6. TRIFLUCAN [Suspect]
     Active Substance: FLUCONAZOLE
     Indication: INFLAMMATION
     Dosage: 50 MG, DAILY
     Route: 048
     Dates: start: 20141025, end: 20141029
  7. CALCIPARINE [Suspect]
     Active Substance: HEPARIN CALCIUM
     Indication: THROMBOSIS PROPHYLAXIS
     Dosage: 5000 IU, DAILY
     Route: 058
     Dates: start: 20141013, end: 20141018
  8. PLAVIX [Concomitant]
     Active Substance: CLOPIDOGREL BISULFATE
     Dosage: UNK
     Dates: start: 201410
  9. DOLIPRANE [Concomitant]
     Active Substance: ACETAMINOPHEN
     Dosage: UNK
     Dates: start: 201410
  10. KARDEGIC [Concomitant]
     Active Substance: ASPIRIN LYSINE
     Dosage: UNK
     Dates: start: 201410
  11. ROCEPHINE [Suspect]
     Active Substance: CEFTRIAXONE SODIUM
     Indication: URINARY TRACT INFECTION
     Dosage: 1 G, DAILY
     Route: 058
     Dates: start: 20141013, end: 20141020
  12. EUPANTOL [Suspect]
     Active Substance: PANTOPRAZOLE SODIUM
     Indication: PROPHYLAXIS
     Dosage: 40 MG, DAILY
     Route: 042
     Dates: start: 20141013, end: 20141016
  13. RISORDAN [Suspect]
     Active Substance: ISOSORBIDE DINITRATE
     Dosage: 24 MG, DAILY
     Route: 042
     Dates: end: 20141027
  14. EPINITRIL [Suspect]
     Active Substance: NITROGLYCERIN
     Indication: PROPHYLAXIS
     Dosage: 5 MG, DAILY
     Route: 062
     Dates: start: 20141015, end: 20141020
  15. NORMACOL [Suspect]
     Active Substance: KARAYA GUM
     Indication: CONSTIPATION
     Dosage: UNK, AS NEEDED
     Route: 054
     Dates: start: 20141014, end: 20141018
  16. HYPNOVEL [Suspect]
     Active Substance: MIDAZOLAM\MIDAZOLAM HYDROCHLORIDE
     Indication: AGITATION
     Dosage: 5 MG, AS NEEDED
     Route: 058
     Dates: start: 20141014, end: 20141023
  17. CONTRAMAL [Suspect]
     Active Substance: TRAMADOL HYDROCHLORIDE
     Indication: PAIN
     Dosage: 30 MG, DAILY
     Route: 048
     Dates: start: 20141025, end: 20141026
  18. CHLORHYDRATE DE MORPHINE [Suspect]
     Active Substance: MORPHINE HYDROCHLORIDE
     Indication: PAIN
     Dosage: 10 MG, AS NEEDED
     Route: 042
     Dates: start: 20141013, end: 20141016
  19. ATROVENT [Suspect]
     Active Substance: IPRATROPIUM BROMIDE
     Indication: DYSPNOEA
     Dosage: 1.5 MG, DAILY
     Route: 055
     Dates: start: 20141020, end: 20141020
  20. FLAGYL [Concomitant]
     Active Substance: METRONIDAZOLE\METRONIDAZOLE HYDROCHLORIDE
     Dosage: UNK
     Dates: start: 201410
  21. BISOCE [Concomitant]
     Active Substance: BISOPROLOL
     Dosage: UNK
     Dates: start: 201410
  22. LOVENOX [Concomitant]
     Active Substance: ENOXAPARIN SODIUM
     Dosage: UNK
     Dates: start: 201410
  23. RISORDAN [Suspect]
     Active Substance: ISOSORBIDE DINITRATE
     Indication: ANGINA UNSTABLE
     Dosage: 30 MG, DAILY
     Route: 042
  24. ATIVAN [Concomitant]
     Active Substance: LORAZEPAM
     Dosage: UNK
     Dates: start: 201410
  25. LOXAPAC [Concomitant]
     Active Substance: LOXAPINE SUCCINATE
     Dosage: UNK
     Dates: start: 201410

REACTIONS (1)
  - Neutropenia [Recovered/Resolved]

NARRATIVE: CASE EVENT DATE: 20141027
